FAERS Safety Report 20897497 (Version 1)
Quarter: 2022Q2

REPORT INFORMATION
  Report Type: Spontaneous
  Country: CA (occurrence: CA)
  Receive Date: 20220531
  Receipt Date: 20220531
  Transmission Date: 20220721
  Serious: Yes (Hospitalization, Other)
  Sender: FDA-Public Use
  Company Number: CA-NAPPMUNDI-GBR-2022-0098396

PATIENT
  Age: 76 Year
  Sex: Male

DRUGS (2)
  1. OXYCODONE HYDROCHLORIDE [Suspect]
     Active Substance: OXYCODONE HYDROCHLORIDE
     Indication: Product used for unknown indication
     Dosage: UNKNOWN
     Route: 065
  2. OMALIZUMAB [Suspect]
     Active Substance: OMALIZUMAB
     Indication: Asthma
     Dosage: 375 MILLIGRAM, QOW
     Route: 058

REACTIONS (11)
  - Back pain [Unknown]
  - Drug hypersensitivity [Unknown]
  - Erythema [Unknown]
  - Illness [Unknown]
  - Infection [Unknown]
  - Pneumonia [Unknown]
  - Precancerous skin lesion [Unknown]
  - Pyrexia [Unknown]
  - Rash [Unknown]
  - Spondyloarthropathy [Unknown]
  - Swelling face [Unknown]
